FAERS Safety Report 9137405 (Version 1)
Quarter: 2013Q1

REPORT INFORMATION
  Report Type: Spontaneous
  Country: US (occurrence: US)
  Receive Date: 20130304
  Receipt Date: 20130304
  Transmission Date: 20140127
  Serious: No
  Sender: FDA-Public Use
  Company Number: US-ENDO PHARMACEUTICALS INC.-PERC20100120

PATIENT
  Sex: Male

DRUGS (2)
  1. PERCOCET-5 [Suspect]
     Indication: PRODUCT USED FOR UNKNOWN INDICATION
     Dosage: UNK
     Route: 048
  2. MS CONTIN [Suspect]
     Indication: PRODUCT USED FOR UNKNOWN INDICATION
     Dosage: UNK
     Route: 065

REACTIONS (6)
  - Pollakiuria [Unknown]
  - Drug effect decreased [Unknown]
  - Breakthrough pain [Unknown]
  - Constipation [Unknown]
  - Dizziness [Unknown]
  - Hyperhidrosis [Unknown]
